FAERS Safety Report 25786591 (Version 1)
Quarter: 2025Q3

REPORT INFORMATION
  Report Type: Spontaneous
  Country: EU (occurrence: EU)
  Receive Date: 20250910
  Receipt Date: 20250910
  Transmission Date: 20251021
  Serious: Yes (Other)
  Sender: PFIZER
  Company Number: None

PATIENT
  Age: 85 Year
  Sex: Male
  Weight: 66 kg

DRUGS (7)
  1. CLINDAMYCIN [Suspect]
     Active Substance: CLINDAMYCIN
     Indication: Acute cholecystitis necrotic
     Dosage: 1800 MG, DAILY
     Route: 048
     Dates: start: 20250729, end: 20250803
  2. CEFTRIAXONE [Suspect]
     Active Substance: CEFTRIAXONE
     Indication: Acute cholecystitis necrotic
     Dosage: 1 G, DAILY(1 G/3,5 ML)
     Route: 042
     Dates: start: 20250728, end: 20250803
  3. METRONIDAZOLE [Concomitant]
     Active Substance: METRONIDAZOLE
     Indication: Acute cholecystitis necrotic
     Dosage: 1500 MG, DAILY
     Route: 042
     Dates: start: 20250728, end: 20250803
  4. LISINOPRIL [Concomitant]
     Active Substance: LISINOPRIL
  5. RABEPRAZOLE SODIUM [Concomitant]
     Active Substance: RABEPRAZOLE SODIUM
  6. DUTASTERIDE [Concomitant]
     Active Substance: DUTASTERIDE
  7. TAMSULOSIN [Concomitant]
     Active Substance: TAMSULOSIN

REACTIONS (2)
  - Immune thrombocytopenia [Recovering/Resolving]
  - Erythema [Recovering/Resolving]

NARRATIVE: CASE EVENT DATE: 20250803
